FAERS Safety Report 6758246-3 (Version None)
Quarter: 2010Q2

REPORT INFORMATION
  Report Type: 
  Country: None (occurrence: None)
  Receive Date: 20100607
  Receipt Date: 20100524
  Transmission Date: 20101027
  Serious: Yes (Hospitalization)
  Sender: FDA-Public Use
  Company Number: JP-ELI_LILLY_AND_COMPANY-JP201005005041

PATIENT
  Sex: Female
  Weight: 51.8 kg

DRUGS (6)
  1. GEMCITABINE HYDROCHLORIDE [Suspect]
     Indication: BILE DUCT CANCER
     Dosage: 1357 MG, OTHER
     Route: 042
     Dates: start: 20091215
  2. BLINDED THERAPY [Suspect]
     Indication: BILE DUCT CANCER
     Dosage: 1 MG, OTHER
     Route: 058
     Dates: start: 20091215
  3. KYTRIL [Concomitant]
     Indication: PROPHYLAXIS OF NAUSEA AND VOMITING
     Dosage: 3 MG, UNKNOWN
     Route: 042
     Dates: start: 20091215
  4. LOXONIN [Concomitant]
     Indication: CANCER PAIN
     Dosage: UNK, UNKNOWN
     Route: 048
     Dates: start: 20091215
  5. MUCOSTA [Concomitant]
     Indication: GASTRITIS
     Dosage: 60 MG, 2/D
     Route: 048
     Dates: start: 20091215
  6. LAXOBERON [Concomitant]
     Indication: CONSTIPATION
     Dosage: 10 D/F, AS NEEDED
     Route: 048
     Dates: start: 20100217

REACTIONS (1)
  - CHOLANGITIS [None]
